FAERS Safety Report 10225621 (Version 2)
Quarter: 2014Q2

REPORT INFORMATION
  Report Type: Spontaneous
  Country: US (occurrence: US)
  Receive Date: 20140609
  Receipt Date: 20140609
  Transmission Date: 20141212
  Serious: No
  Sender: FDA-Public Use
  Company Number: US-ASTELLAS-2013US012885

PATIENT
  Age: 61 Year
  Sex: Male

DRUGS (11)
  1. PROGRAF [Suspect]
     Indication: DERMATOMYOSITIS
     Route: 048
     Dates: start: 20130904
  2. PROGRAF [Suspect]
     Indication: SJOGREN^S SYNDROME
  3. AMLODIPINE [Concomitant]
     Indication: HYPERTENSION
     Route: 048
  4. ZESTRIL [Concomitant]
     Indication: HYPERTENSION
     Route: 048
  5. CELLCEPT                           /01275102/ [Concomitant]
     Indication: ORGAN TRANSPLANT
     Route: 065
  6. PROTONIX [Concomitant]
     Indication: EROSIVE OESOPHAGITIS
     Route: 048
  7. PREDNISONE [Concomitant]
     Indication: STEROID THERAPY
     Route: 065
  8. SOTALOL [Concomitant]
     Indication: ARRHYTHMIA
     Route: 048
  9. METHOTREXATE [Concomitant]
     Indication: PRODUCT USED FOR UNKNOWN INDICATION
     Route: 065
  10. IVGG [Concomitant]
     Indication: PRODUCT USED FOR UNKNOWN INDICATION
     Route: 065
  11. IMURAN                             /00001501/ [Concomitant]
     Indication: PRODUCT USED FOR UNKNOWN INDICATION
     Route: 065

REACTIONS (1)
  - Off label use [Unknown]
